FAERS Safety Report 4689523-8 (Version None)
Quarter: 2005Q2

REPORT INFORMATION
  Report Type: 
  Country: None (occurrence: None)
  Receive Date: 20050614
  Receipt Date: 20050608
  Transmission Date: 20051028
  Serious: Yes (Other)
  Sender: FDA-Public Use
  Company Number: PHNU2005DE02201

PATIENT
  Sex: Male

DRUGS (2)
  1. AREDIA [Suspect]
     Indication: RENAL CELL CARCINOMA STAGE UNSPECIFIED
     Dates: start: 19991101, end: 20010101
  2. ZOMETA [Suspect]
     Indication: RENAL CELL CARCINOMA STAGE UNSPECIFIED
     Dosage: UNK, UNK
     Dates: start: 20010101

REACTIONS (1)
  - ASEPTIC NECROSIS BONE [None]
